FAERS Safety Report 6078995-2 (Version None)
Quarter: 2009Q1

REPORT INFORMATION
  Report Type: 
  Country: None (occurrence: None)
  Receive Date: 20090216
  Receipt Date: 20090205
  Transmission Date: 20090719
  Serious: Yes (Hospitalization, Other)
  Sender: FDA-Public Use
  Company Number: US-ELI_LILLY_AND_COMPANY-US200902001335

PATIENT
  Sex: Male

DRUGS (19)
  1. BYETTA [Suspect]
     Indication: TYPE 2 DIABETES MELLITUS
     Dosage: 5 UG, 2/D
     Route: 058
     Dates: start: 20080501, end: 20080601
  2. BYETTA [Suspect]
     Dosage: 10 UG, 2/D
     Route: 058
     Dates: start: 20080601
  3. PRANDIN [Concomitant]
     Indication: TYPE 2 DIABETES MELLITUS
     Dosage: 4 MG, 3/D
  4. LEVEMIR [Concomitant]
     Indication: TYPE 2 DIABETES MELLITUS
     Dosage: 25 U, EACH MORNING
  5. PREDNISONE [Concomitant]
     Indication: TRANSPLANT
  6. PROGRAF [Concomitant]
     Indication: TRANSPLANT
  7. CELLCEPT [Concomitant]
     Indication: TRANSPLANT
  8. PRILOSEC [Concomitant]
     Indication: GASTROOESOPHAGEAL REFLUX DISEASE
  9. MULTI-VITAMIN [Concomitant]
  10. COENZYME Q10 [Concomitant]
  11. LOVAZA [Concomitant]
  12. ASPIRIN [Concomitant]
  13. MAGNESIUM OXIDE [Concomitant]
  14. CLONIDINE HCL [Concomitant]
     Indication: BLOOD PRESSURE INCREASED
  15. LASIX [Concomitant]
     Indication: DIURETIC THERAPY
  16. PLAVIX [Concomitant]
     Indication: ANTICOAGULANT THERAPY
  17. IMDUR [Concomitant]
     Indication: CARDIAC DISORDER
  18. LIPITOR [Concomitant]
     Indication: BLOOD CHOLESTEROL INCREASED
  19. CARDENE [Concomitant]
     Indication: HYPERTENSION

REACTIONS (3)
  - AV DISSOCIATION [None]
  - NAUSEA [None]
  - PNEUMONIA STREPTOCOCCAL [None]
